FAERS Safety Report 8000482-2 (Version None)
Quarter: 2011Q4

REPORT INFORMATION
  Report Type: 
  Country: None (occurrence: None)
  Receive Date: 20111222
  Receipt Date: 20111214
  Transmission Date: 20120403
  Serious: Yes (Other)
  Sender: FDA-Public Use
  Company Number: DE-BAYER-2011-108234

PATIENT
  Age: 44 Year
  Sex: Female
  Weight: 110 kg

DRUGS (5)
  1. LEVOTHYROXINE SODIUM [Concomitant]
     Dosage: UNK
     Dates: start: 20090301
  2. VITAMIN B-12 [Concomitant]
  3. OMEPRAZOLE [Concomitant]
     Dosage: UNK
     Dates: start: 19910301
  4. EXTAVIA [Suspect]
     Indication: RELAPSING-REMITTING MULTIPLE SCLEROSIS
     Dosage: 1 ML, QOD
     Route: 058
     Dates: start: 20100106, end: 20101024
  5. PIROXICAM [Concomitant]
     Dosage: UNK
     Dates: start: 20050101

REACTIONS (1)
  - SKIN NECROSIS [None]
